FAERS Safety Report 7182745-6 (Version None)
Quarter: 2010Q4

REPORT INFORMATION
  Report Type: 
  Country: None (occurrence: None)
  Receive Date: 20101221
  Receipt Date: 20100730
  Transmission Date: 20110411
  Serious: No
  Sender: FDA-Public Use
  Company Number: US-AMGEN-KDL410662

PATIENT

DRUGS (6)
  1. ENBREL [Suspect]
     Indication: RHEUMATOID ARTHRITIS
     Dosage: 50 MG, QWK
     Route: 058
     Dates: start: 20100308, end: 20100406
  2. VERAPAMIL [Concomitant]
     Dosage: UNK UNK, TID
  3. SULFASALAZINE [Concomitant]
     Dosage: UNK UNK, BID
  4. HYDROXYCHLOROQUINE SULFATE [Concomitant]
     Dosage: UNK UNK, QD
  5. MONTELUKAST [Concomitant]
     Dosage: UNK UNK, QD
  6. MULTI-VITAMINS [Concomitant]
     Dosage: UNK UNK, QD

REACTIONS (3)
  - INJECTION SITE INDURATION [None]
  - INJECTION SITE REACTION [None]
  - INJECTION SITE SWELLING [None]
